FAERS Safety Report 15315951 (Version 1)
Quarter: 2018Q3

REPORT INFORMATION
  Report Type: Spontaneous
  Country: US (occurrence: US)
  Receive Date: 20180824
  Receipt Date: 20180824
  Transmission Date: 20181010
  Serious: Yes (Hospitalization)
  Sender: FDA-Public Use
  Company Number: US-OTSUKA-2018_026710

PATIENT
  Sex: Female

DRUGS (1)
  1. ABILIFY [Suspect]
     Active Substance: ARIPIPRAZOLE
     Indication: BIPOLAR DISORDER
     Dosage: (20?30 MG), QD
     Route: 065
     Dates: start: 200801, end: 201504

REACTIONS (8)
  - Neuropsychiatric symptoms [Unknown]
  - Bankruptcy [Unknown]
  - Injury [Unknown]
  - Emotional distress [Unknown]
  - Economic problem [Unknown]
  - Loss of employment [Unknown]
  - Mental disorder [Unknown]
  - Gambling disorder [Recovered/Resolved]
